FAERS Safety Report 20745285 (Version 3)
Quarter: 2023Q2

REPORT INFORMATION
  Report Type: Spontaneous
  Country: AU (occurrence: AU)
  Receive Date: 20220425
  Receipt Date: 20230411
  Transmission Date: 20230722
  Serious: Yes (Hospitalization, Other)
  Sender: FDA-Public Use
  Company Number: AU-NOVARTISPH-NVSC2022AU094729

PATIENT
  Age: 56 Year
  Sex: Female

DRUGS (4)
  1. LETROZOLE [Suspect]
     Active Substance: LETROZOLE
     Indication: Breast cancer
     Dosage: UNK
     Route: 065
     Dates: start: 20200201, end: 20200701
  2. LETROZOLE [Suspect]
     Active Substance: LETROZOLE
     Dosage: UNK
     Route: 065
     Dates: start: 20200701, end: 20200701
  3. PALBOCICLIB [Concomitant]
     Active Substance: PALBOCICLIB
     Indication: Systemic toxicity
     Dosage: UNK
     Route: 065
     Dates: start: 20200301, end: 20200701
  4. ABEMACICLIB [Concomitant]
     Active Substance: ABEMACICLIB
     Indication: Systemic toxicity
     Dosage: UNK
     Route: 065
     Dates: start: 20200301, end: 20200701

REACTIONS (4)
  - Pancytopenia [Recovered/Resolved]
  - Thrombocytopenia [Unknown]
  - Leukopenia [Unknown]
  - Anaemia [Unknown]

NARRATIVE: CASE EVENT DATE: 20200401
